FAERS Safety Report 23392174 (Version 1)
Quarter: 2024Q1

REPORT INFORMATION
  Report Type: Spontaneous
  Country: US (occurrence: US)
  Receive Date: 20240111
  Receipt Date: 20240111
  Transmission Date: 20240410
  Serious: No
  Sender: FDA-Public Use
  Company Number: US-PFIZER INC-PV202400001544

PATIENT
  Sex: Female

DRUGS (2)
  1. MEDROL [Suspect]
     Active Substance: METHYLPREDNISOLONE
     Indication: Sinusitis
     Dosage: 6 TABLETS PER DAY
     Dates: start: 2019
  2. MEDROL [Suspect]
     Active Substance: METHYLPREDNISOLONE
     Dosage: 1 TABLET PER DAY

REACTIONS (4)
  - Nervousness [Recovered/Resolved]
  - Insomnia [Recovered/Resolved]
  - Heart rate increased [Recovered/Resolved]
  - Off label use [Unknown]
